FAERS Safety Report 4383102-8 (Version None)
Quarter: 2004Q2

REPORT INFORMATION
  Report Type: 
  Country: None (occurrence: None)
  Receive Date: 20040622
  Receipt Date: 20040622
  Transmission Date: 20050107
  Serious: Yes (Hospitalization, Other)
  Sender: FDA-Public Use
  Company Number: None

PATIENT
  Age: 74 Year
  Sex: Male
  Weight: 58.9676 kg

DRUGS (9)
  1. TRISENOX [Suspect]
     Indication: MYELODYSPLASTIC SYNDROME
     Dosage: LOADING DOSE -DAYS 1-5 , 15 MG/KG THEN TWICE WEEKLY 15 MG/KG
     Dates: start: 20040607, end: 20040611
  2. TRISENOX [Suspect]
     Indication: MYELODYSPLASTIC SYNDROME
     Dosage: LOADING DOSE -DAYS 1-5 , 15 MG/KG THEN TWICE WEEKLY 15 MG/KG
     Dates: start: 20040615
  3. CLONIDONE [Concomitant]
  4. HYDROCHLOROTHIAZIDE [Concomitant]
  5. PREDNISONE [Concomitant]
  6. ASPIRIN [Concomitant]
  7. DARVOCET [Concomitant]
  8. PRILOSEC [Concomitant]
  9. ALDACTONE [Concomitant]

REACTIONS (2)
  - DIVERTICULUM [None]
  - SMALL INTESTINAL OBSTRUCTION [None]
